FAERS Safety Report 8900983 (Version 1)
Quarter: 2012Q4

REPORT INFORMATION
  Report Type: 
  Country: US (occurrence: US)
  Receive Date: 20121109
  Receipt Date: 20121109
  Transmission Date: 20130627
  Serious: Yes (Other)
  Sender: FDA-Public Use
  Company Number: PHEH2012US021974

PATIENT
  Sex: Female

DRUGS (5)
  1. DIOVAN [Suspect]
     Indication: HYPERTENSION
     Dosage: 80 mg, Daily
     Route: 048
  2. ASPIRIN [Concomitant]
  3. LEVOTHYROXIN [Concomitant]
  4. METOPROLOL [Concomitant]
  5. ACIPHEX [Concomitant]

REACTIONS (7)
  - Osteoarthritis [Unknown]
  - Nephrolithiasis [Unknown]
  - Swelling [Unknown]
  - Back pain [Unknown]
  - Incontinence [Unknown]
  - Vomiting [Unknown]
  - Blood pressure increased [Unknown]
